FAERS Safety Report 6402768-1 (Version None)
Quarter: 2009Q4

REPORT INFORMATION
  Report Type: 
  Country: None (occurrence: None)
  Receive Date: 20091016
  Receipt Date: 20091005
  Transmission Date: 20100525
  Serious: Yes (Other)
  Sender: FDA-Public Use
  Company Number: CA-RANBAXY-2008RR-14842

PATIENT
  Age: 15 Year
  Sex: Female

DRUGS (3)
  1. MINOCYCLINE [Suspect]
  2. DAPSONE [Suspect]
  3. SULFASALAZINE [Suspect]

REACTIONS (2)
  - DRUG RASH WITH EOSINOPHILIA AND SYSTEMIC SYMPTOMS [None]
  - POLYGLANDULAR DISORDER [None]
